FAERS Safety Report 16733433 (Version 1)
Quarter: 2019Q3

REPORT INFORMATION
  Report Type: Spontaneous
  Country: GB (occurrence: GB)
  Receive Date: 20190823
  Receipt Date: 20190823
  Transmission Date: 20191005
  Serious: Yes (Hospitalization, Other)
  Sender: FDA-Public Use
  Company Number: GB-TEVA-2019-GB-1095548

PATIENT
  Age: 57 Year
  Sex: Male
  Weight: 72.11 kg

DRUGS (5)
  1. ATORVASTATIN CALCIUM TRIHYDRATE [Concomitant]
     Active Substance: ATORVASTATIN CALCIUM
  2. TERBINAFINE HYDROCHLORIDE. [Concomitant]
     Active Substance: TERBINAFINE HYDROCHLORIDE
  3. TAMSULOSIN HYDROCHLORIDE. [Suspect]
     Active Substance: TAMSULOSIN HYDROCHLORIDE
     Indication: BRACHYTHERAPY TO PROSTATE
     Dosage: 400 MG
     Route: 048
     Dates: start: 20190616
  4. BICALUTAMIDE. [Concomitant]
     Active Substance: BICALUTAMIDE
  5. LISINOPRIL ANHYDROUS [Concomitant]
     Active Substance: LISINOPRIL

REACTIONS (1)
  - Syncope [Recovered/Resolved]

NARRATIVE: CASE EVENT DATE: 20190716
